FAERS Safety Report 5001576-6 (Version None)
Quarter: 2006Q2

REPORT INFORMATION
  Report Type: 
  Country: None (occurrence: None)
  Receive Date: 20060510
  Receipt Date: 20060501
  Transmission Date: 20061013
  Serious: Yes (Hospitalization)
  Sender: FDA-Public Use
  Company Number: 2006017699

PATIENT
  Sex: Female
  Weight: 73.4827 kg

DRUGS (10)
  1. DETROL LA [Suspect]
     Indication: HYPERTONIC BLADDER
     Dosage: 4 MG (4 MG, 1 IN 1 D), ORAL
     Route: 048
     Dates: start: 20020301
  2. PREDNISONE TAB [Suspect]
     Indication: COLITIS ULCERATIVE
     Dosage: ORAL
     Route: 048
  3. SYNTHROID [Concomitant]
  4. TOPROL-XL [Concomitant]
  5. DIGOXIN [Concomitant]
  6. LIPITOR [Concomitant]
  7. NITRO (GLYCERYL TRINITRATE) [Concomitant]
  8. EXTRA STRENGTH TYLENOL (PARACETAMOL0 [Concomitant]
  9. ALL OTHER THERAPEUTIC PRODUCTS (ALL OTHER THERAPEUTIC PRODUCTS) [Concomitant]
  10. TYLENOL [Concomitant]

REACTIONS (9)
  - ABDOMINAL PAIN UPPER [None]
  - ARTHRITIS [None]
  - COLITIS ULCERATIVE [None]
  - CONSTIPATION [None]
  - DIABETES MELLITUS [None]
  - DRUG INEFFECTIVE [None]
  - GASTROOESOPHAGEAL REFLUX DISEASE [None]
  - INSOMNIA [None]
  - MUSCLE SPASMS [None]
